FAERS Safety Report 7092672-0 (Version None)
Quarter: 2010Q4

REPORT INFORMATION
  Report Type: 
  Country: None (occurrence: None)
  Receive Date: 20101110
  Receipt Date: 20101101
  Transmission Date: 20110411
  Serious: Yes (Death, Hospitalization, Other)
  Sender: FDA-Public Use
  Company Number: JP-JNJFOC-20100807628

PATIENT
  Sex: Female
  Weight: 38.5 kg

DRUGS (9)
  1. LEVOFLOXACIN [Suspect]
     Indication: PYELONEPHRITIS
     Dosage: 3 DAY REGIMEN. AFTER BREAKFAST
     Route: 048
  2. LEVOFLOXACIN [Suspect]
     Indication: DIVERTICULITIS
     Dosage: 3 DAY REGIMEN. AFTER BREAKFAST
     Route: 048
  3. LEVOFLOXACIN [Suspect]
     Indication: URINARY TRACT INFECTION
     Dosage: 3 DAY REGIMEN. AFTER BREAKFAST
     Route: 048
  4. AMARYL [Suspect]
     Indication: DIABETES MELLITUS
     Dosage: AFTER EVERY MEAL
     Route: 048
  5. BASEN [Suspect]
     Indication: DIABETES MELLITUS
     Dosage: BEFORE EVERY MEAL
     Route: 048
  6. CANDESARTAN CILEXETIL [Suspect]
     Indication: HYPERTENSION
     Route: 048
  7. PALUX [Suspect]
     Indication: PERIPHERAL ISCHAEMIA
     Route: 065
  8. BUP-4 [Concomitant]
  9. ALL OTHER THERAPEUTIC PRODUCTS [Concomitant]
     Indication: PERIPHERAL ISCHAEMIA
     Route: 065

REACTIONS (7)
  - BLOOD GLUCOSE INCREASED [None]
  - BLOOD PRESSURE DECREASED [None]
  - HYPOGLYCAEMIA [None]
  - HYPOGLYCAEMIC ENCEPHALOPATHY [None]
  - MYDRIASIS [None]
  - PERIPHERAL ISCHAEMIA [None]
  - URINE ODOUR ABNORMAL [None]
